FAERS Safety Report 18298826 (Version 1)
Quarter: 2020Q3

REPORT INFORMATION
  Report Type: Spontaneous
  Country: TH (occurrence: TH)
  Receive Date: 20200922
  Receipt Date: 20200922
  Transmission Date: 20201103
  Serious: Yes (Other)
  Sender: FDA-Public Use
  Company Number: TH-MYLANLABS-2020M1078947

PATIENT
  Sex: Female

DRUGS (3)
  1. DOXORUBICIN [Concomitant]
     Active Substance: DOXORUBICIN
     Indication: CHEMOTHERAPY
     Dosage: UNK UNK, 2 WEEK CYCLE
     Dates: start: 20200825
  2. CYCLOPHOSPHAMIDE. [Concomitant]
     Active Substance: CYCLOPHOSPHAMIDE
     Indication: CHEMOTHERAPY
     Dosage: UNK UNK, 2 WEEK CYCLE
     Dates: start: 20200825
  3. FULPHILA [Suspect]
     Active Substance: PEGFILGRASTIM-JMDB
     Indication: BREAST CANCER FEMALE
     Dosage: UNK UNK, CYCLE
     Dates: start: 20200827

REACTIONS (2)
  - Neutrophil count decreased [Recovering/Resolving]
  - Palpitations [Unknown]

NARRATIVE: CASE EVENT DATE: 2020
